FAERS Safety Report 5109824-9 (Version None)
Quarter: 2006Q3

REPORT INFORMATION
  Report Type: 
  Country: None (occurrence: None)
  Receive Date: 20060918
  Receipt Date: 20060918
  Transmission Date: 20061208
  Serious: Yes (Hospitalization)
  Sender: FDA-Public Use
  Company Number: None

PATIENT
  Age: 46 Year
  Sex: Female
  Weight: 107.9561 kg

DRUGS (2)
  1. AVELOX [Suspect]
     Indication: BRONCHITIS
     Dosage: 1 TABLET DAILY PO
     Route: 048
     Dates: start: 20060914, end: 20060914
  2. AVELOX [Suspect]
     Indication: SINUS DISORDER
     Dosage: 1 TABLET DAILY PO
     Route: 048
     Dates: start: 20060914, end: 20060914

REACTIONS (5)
  - ABDOMINAL PAIN UPPER [None]
  - DIZZINESS [None]
  - NAUSEA [None]
  - PARAESTHESIA ORAL [None]
  - URTICARIA GENERALISED [None]
